FAERS Safety Report 25895744 (Version 2)
Quarter: 2025Q4

REPORT INFORMATION
  Report Type: Report from Study
  Country: US (occurrence: US)
  Receive Date: 20251008
  Receipt Date: 20251013
  Transmission Date: 20260118
  Serious: Yes (Hospitalization, Other)
  Sender: MALLINCKRODT
  Company Number: US-MALLINCKRODT-MNK202506070

PATIENT
  Age: 12 Month
  Sex: Male
  Weight: 9 kg

DRUGS (3)
  1. CORTICOTROPIN [Suspect]
     Active Substance: CORTICOTROPIN
     Indication: Infantile spasms
     Route: 030
     Dates: start: 20250904, end: 202509
  2. CORTICOTROPIN [Suspect]
     Active Substance: CORTICOTROPIN
     Route: 030
     Dates: start: 202509, end: 20250926
  3. VIGAFYDE [Concomitant]
     Active Substance: VIGABATRIN
     Indication: Infantile spasms
     Dosage: UNKNOWN
     Dates: start: 202509

REACTIONS (10)
  - Hypotension [Unknown]
  - Dyspnoea [Unknown]
  - Urinary tract infection [Recovered/Resolved]
  - Seizure [Recovered/Resolved]
  - Lip discolouration [Unknown]
  - Lung disorder [Recovering/Resolving]
  - Dysphagia [Unknown]
  - Decreased activity [Unknown]
  - Skin discolouration [Unknown]
  - Fatigue [Unknown]

NARRATIVE: CASE EVENT DATE: 20250901
